FAERS Safety Report 16205909 (Version 2)
Quarter: 2019Q2

REPORT INFORMATION
  Report Type: Spontaneous
  Country: US (occurrence: US)
  Receive Date: 20190417
  Receipt Date: 20190521
  Transmission Date: 20190711
  Serious: No
  Sender: FDA-Public Use
  Company Number: US-ASTRAZENECA-2019SE45389

PATIENT
  Age: 3721 Day
  Sex: Male
  Weight: 29.5 kg

DRUGS (2)
  1. PULMICORT FLEXHALER [Suspect]
     Active Substance: BUDESONIDE
     Indication: ASTHMA
     Route: 055
     Dates: start: 20181025
  2. PROAIR HFA [Concomitant]
     Active Substance: ALBUTEROL SULFATE
     Indication: INHALATION THERAPY
     Route: 055

REACTIONS (8)
  - Off label use [Unknown]
  - Nasopharyngitis [Recovered/Resolved]
  - Product use issue [Unknown]
  - Cough [Not Recovered/Not Resolved]
  - Intentional product misuse [Unknown]
  - Device issue [Unknown]
  - Chest discomfort [Recovered/Resolved]
  - Product dose omission [Unknown]

NARRATIVE: CASE EVENT DATE: 20181025
